FAERS Safety Report 6238660-5 (Version None)
Quarter: 2009Q2

REPORT INFORMATION
  Report Type: 
  Country: None (occurrence: None)
  Receive Date: 20090617
  Receipt Date: 20080325
  Transmission Date: 20091009
  Serious: No
  Sender: FDA-Public Use
  Company Number: 273568

PATIENT
  Sex: Female

DRUGS (1)
  1. LEVEMIR [Suspect]
     Indication: DIABETES MELLITUS
     Dosage: 2 IU, SUBCUTANEOUS : 20 IU, SUBCUTANEOUS
     Route: 058

REACTIONS (4)
  - BLOOD GLUCOSE INCREASED [None]
  - DEHYDRATION [None]
  - INCORRECT DOSE ADMINISTERED [None]
  - MALAISE [None]
